FAERS Safety Report 25034975 (Version 3)
Quarter: 2025Q2

REPORT INFORMATION
  Report Type: Spontaneous
  Country: JP (occurrence: JP)
  Receive Date: 20250304
  Receipt Date: 20250408
  Transmission Date: 20250717
  Serious: Yes (Hospitalization)
  Sender: GILEAD
  Company Number: JP-GILEAD-2025-0705664

PATIENT
  Age: 9 Decade
  Sex: Male

DRUGS (1)
  1. BIKTARVY [Suspect]
     Active Substance: BICTEGRAVIR SODIUM\EMTRICITABINE\TENOFOVIR ALAFENAMIDE FUMARATE
     Indication: Product used for unknown indication
     Route: 048
     Dates: start: 2024

REACTIONS (2)
  - Fracture [Unknown]
  - Product use complaint [Unknown]
